FAERS Safety Report 15384349 (Version 3)
Quarter: 2018Q4

REPORT INFORMATION
  Report Type: Report from Study
  Country: None (occurrence: FR)
  Receive Date: 20180914
  Receipt Date: 20181031
  Transmission Date: 20190204
  Serious: Yes (Hospitalization, Other)
  Sender: FDA-Public Use
  Company Number: FR-ABBVIE-18K-056-2328941-00

PATIENT
  Sex: Male

DRUGS (3)
  1. DUODOPA [Suspect]
     Active Substance: CARBIDOPA\LEVODOPA
     Indication: PARKINSON^S DISEASE
     Route: 050
     Dates: start: 20180227, end: 20180301
  2. DUODOPA [Suspect]
     Active Substance: CARBIDOPA\LEVODOPA
     Dosage: MD: 6 ML?CD FOR DAY: 4.2 ML/H?CD FOR NIGHT: 0.5 ML/H?ED: 1 ML
     Route: 050
     Dates: start: 20180301, end: 2018
  3. DUODOPA [Suspect]
     Active Substance: CARBIDOPA\LEVODOPA
     Route: 050
     Dates: start: 20180308

REACTIONS (14)
  - Device dislocation [Unknown]
  - Device defective [Unknown]
  - Intentional medical device removal by patient [Unknown]
  - Dyskinesia [Unknown]
  - Prescription drug used without a prescription [Recovered/Resolved]
  - Device occlusion [Unknown]
  - Intentional product misuse [Unknown]
  - Aggression [Not Recovered/Not Resolved]
  - Drug dependence [Not Recovered/Not Resolved]
  - Device use error [Unknown]
  - Device computer issue [Unknown]
  - Dyskinesia [Not Recovered/Not Resolved]
  - Medical device change [Unknown]
  - Constipation [Not Recovered/Not Resolved]

NARRATIVE: CASE EVENT DATE: 2018
